FAERS Safety Report 9365186 (Version 1)
Quarter: 2013Q2

REPORT INFORMATION
  Report Type: Report from Study
  Country: US (occurrence: US)
  Receive Date: 20130624
  Receipt Date: 20130624
  Transmission Date: 20140414
  Serious: Yes (Death, Hospitalization, Other)
  Sender: FDA-Public Use
  Company Number: US-ABBOTT-13P-163-1107463-00

PATIENT
  Age: 59 Year
  Sex: Male
  Weight: 68.1 kg

DRUGS (1)
  1. HUMIRA [Suspect]
     Indication: CROHN^S DISEASE
     Dates: start: 2011, end: 201211

REACTIONS (11)
  - Fatigue [Fatal]
  - Weight decreased [Fatal]
  - Central nervous system lesion [Fatal]
  - Headache [Fatal]
  - Dyspnoea [Fatal]
  - Non-small cell lung cancer [Fatal]
  - Pneumonia [Fatal]
  - Pneumonia [Recovered/Resolved]
  - Dehydration [Recovered/Resolved]
  - Sinusitis [Recovered/Resolved]
  - Diarrhoea [Recovered/Resolved]
